FAERS Safety Report 9260306 (Version 2)
Quarter: 2013Q3

REPORT INFORMATION
  Report Type: Report from Study
  Country: JP (occurrence: JP)
  Receive Date: 20130429
  Receipt Date: 20130905
  Transmission Date: 20140515
  Serious: Yes (Other)
  Sender: FDA-Public Use
  Company Number: PHHY2013JP042095

PATIENT
  Age: 34 Year
  Sex: Male
  Weight: 83 kg

DRUGS (9)
  1. AFINITOR [Suspect]
     Indication: PANCREATIC NEUROENDOCRINE TUMOUR
     Dosage: 10 MG, DAILY
     Route: 048
     Dates: start: 20120405, end: 20120420
  2. AFINITOR [Suspect]
     Dosage: 10 MG, DAILY
     Route: 048
     Dates: start: 20120424
  3. SANDOSTATIN LAR [Concomitant]
     Indication: PANCREATIC NEUROENDOCRINE TUMOUR
     Dosage: 20 UG, UNK
     Route: 030
     Dates: start: 20120405
  4. TEGRETOL [Concomitant]
     Indication: EPILEPSY
     Dosage: 1000 MG, UNK
     Route: 048
  5. ALEVIATIN [Concomitant]
     Dosage: 400 MG, UNK
     Route: 048
  6. DEPAKENE-R [Concomitant]
     Dosage: 600 MG, UNK
     Route: 048
  7. LOXOPROFEN [Concomitant]
     Dosage: 60 MG, UNK
     Route: 048
     Dates: start: 20120420
  8. AZUNOL [Concomitant]
     Route: 048
  9. DEXALTIN [Concomitant]
     Route: 048

REACTIONS (7)
  - Gamma-glutamyltransferase increased [Recovering/Resolving]
  - Hypercholesterolaemia [Not Recovered/Not Resolved]
  - Hypertriglyceridaemia [Recovered/Resolved]
  - Stomatitis [Recovered/Resolved]
  - Pruritus [Not Recovered/Not Resolved]
  - Rash [Not Recovered/Not Resolved]
  - Nasopharyngitis [Recovered/Resolved]
